FAERS Safety Report 20996870 (Version 2)
Quarter: 2022Q4

REPORT INFORMATION
  Report Type: Report from Study
  Country: CA (occurrence: CA)
  Receive Date: 20220623
  Receipt Date: 20221211
  Transmission Date: 20230113
  Serious: Yes (Hospitalization)
  Sender: FDA-Public Use
  Company Number: CA-JNJFOC-20220562131

PATIENT
  Age: 54 Year
  Sex: Female
  Weight: 73 kg

DRUGS (2)
  1. STELARA [Suspect]
     Active Substance: USTEKINUMAB
     Indication: Crohn^s disease
     Route: 058
     Dates: start: 20181203
  2. STELARA [Suspect]
     Active Substance: USTEKINUMAB
     Dosage: RE-INDUCTION CANCELLED
     Route: 042

REACTIONS (12)
  - Viral infection [Unknown]
  - Myalgia [Unknown]
  - Influenza like illness [Unknown]
  - Hepatic enzyme increased [Not Recovered/Not Resolved]
  - Psoriasis [Recovering/Resolving]
  - Vertigo [Unknown]
  - Abdominal pain [Unknown]
  - Vomiting [Unknown]
  - Diarrhoea [Recovering/Resolving]
  - Arthralgia [Recovering/Resolving]
  - Oropharyngeal pain [Unknown]
  - Nausea [Unknown]

NARRATIVE: CASE EVENT DATE: 20220501
